FAERS Safety Report 6886822-6 (Version None)
Quarter: 2010Q3

REPORT INFORMATION
  Report Type: 
  Country: None (occurrence: None)
  Receive Date: 20100730
  Receipt Date: 20100720
  Transmission Date: 20110219
  Serious: Yes (Other)
  Sender: FDA-Public Use
  Company Number: DK-PFIZER INC-2010047471

PATIENT
  Age: 5 Year
  Sex: Female
  Weight: 19 kg

DRUGS (2)
  1. PRO-EPANUTIN [Suspect]
     Indication: CONVULSION
     Dosage: 313MG = 210 PHENYTOINSODIUMEQUIVALENCE
     Route: 030
     Dates: start: 20090908, end: 20090908
  2. VALPROATE SODIUM [Concomitant]
     Indication: CONVULSION
     Dosage: 300 MG + 300 MG + 600 MG
     Dates: start: 20090908

REACTIONS (2)
  - DYSTONIA [None]
  - PARTIAL SEIZURES [None]
